FAERS Safety Report 21065149 (Version 1)
Quarter: 2022Q3

REPORT INFORMATION
  Report Type: Spontaneous
  Country: US (occurrence: None)
  Receive Date: 20220711
  Receipt Date: 20220711
  Transmission Date: 20221026
  Serious: Yes (Hospitalization, Disabling)
  Sender: FDA-Public Use
  Company Number: None

PATIENT
  Age: 40 Year
  Sex: Female
  Weight: 83.25 kg

DRUGS (9)
  1. MOLNUPIRAVIR [Suspect]
     Active Substance: MOLNUPIRAVIR
     Indication: COVID-19
     Dosage: OTHER QUANTITY : 4 CAPSULE(S);?FREQUENCY : TWICE A DAY;?
     Route: 048
     Dates: start: 20220603, end: 20220607
  2. VYVANSE [Concomitant]
     Active Substance: LISDEXAMFETAMINE DIMESYLATE
  3. KEPPRA [Concomitant]
  4. ZONISAMIDE [Concomitant]
  5. LEXAPRO [Concomitant]
  6. FOLIC ACID [Concomitant]
     Active Substance: FOLIC ACID
  7. VITAMIN B12 [Concomitant]
     Active Substance: CYANOCOBALAMIN
  8. HYDROCHLOROTHIAZIDE [Concomitant]
     Active Substance: HYDROCHLOROTHIAZIDE
  9. XANAX [Concomitant]
     Active Substance: ALPRAZOLAM

REACTIONS (6)
  - Generalised tonic-clonic seizure [None]
  - Amnesia [None]
  - Feeling abnormal [None]
  - Electroencephalogram abnormal [None]
  - Loss of personal independence in daily activities [None]
  - Quality of life decreased [None]

NARRATIVE: CASE EVENT DATE: 20220607
